FAERS Safety Report 16613250 (Version 1)
Quarter: 2019Q3

REPORT INFORMATION
  Report Type: Spontaneous
  Country: US (occurrence: US)
  Receive Date: 20190722
  Receipt Date: 20190722
  Transmission Date: 20191004
  Serious: Yes (Life-Threatening, Hospitalization, Disabling, Other)
  Sender: FDA-Public Use
  Company Number: None

PATIENT
  Age: 29 Year
  Sex: Female
  Weight: 109.8 kg

DRUGS (3)
  1. BABY ASPIRIN [Concomitant]
     Active Substance: ASPIRIN
  2. XANAX [Concomitant]
     Active Substance: ALPRAZOLAM
  3. RIZATRIPTAN ODT 10MG [Suspect]
     Active Substance: RIZATRIPTAN BENZOATE
     Indication: MIGRAINE
     Dosage: ?          QUANTITY:1 TABLET(S);?
     Route: 048
     Dates: start: 20190715, end: 20190715

REACTIONS (3)
  - Muscular weakness [None]
  - Paraesthesia [None]
  - Cerebrovascular accident [None]

NARRATIVE: CASE EVENT DATE: 20190716
